FAERS Safety Report 17484598 (Version 1)
Quarter: 2020Q1

REPORT INFORMATION
  Report Type: Spontaneous
  Country: US (occurrence: US)
  Receive Date: 20200302
  Receipt Date: 20200302
  Transmission Date: 20200409
  Serious: Yes (Other)
  Sender: FDA-Public Use
  Company Number: US-SUNOVION-2020SUN000672

PATIENT
  Sex: Male

DRUGS (3)
  1. APTIOM [Suspect]
     Active Substance: ESLICARBAZEPINE ACETATE
     Dosage: UNKNOWN
     Route: 048
  2. DILANTIN [Suspect]
     Active Substance: PHENYTOIN
     Dosage: TWO CAPSULES BY MOUTH IN THE MORNING AT 7AM (200MG) AND THREE CAPSULES IN THE EVENING AT 7PM (300MG)
     Route: 048
  3. KEPPRA [Suspect]
     Active Substance: LEVETIRACETAM

REACTIONS (2)
  - Seizure [Unknown]
  - Somnolence [Unknown]
